FAERS Safety Report 5917851-4 (Version None)
Quarter: 2008Q4

REPORT INFORMATION
  Report Type: 
  Country: None (occurrence: None)
  Receive Date: 20081009
  Receipt Date: 20081002
  Transmission Date: 20090506
  Serious: Yes (Death, Life-Threatening, Other)
  Sender: FDA-Public Use
  Company Number: 2007US000482

PATIENT
  Age: 12 Year
  Sex: Female

DRUGS (4)
  1. FK506 (TACROLIMUS CAPSULES) [Suspect]
     Indication: HEART TRANSPLANT
     Dosage: 1 MG, BID,; 0.25 MG, BID
     Dates: start: 20070226, end: 20070302
  2. FK506 (TACROLIMUS CAPSULES) [Suspect]
     Indication: HEART TRANSPLANT
     Dosage: 1 MG, BID,; 0.25 MG, BID
     Dates: start: 20070305, end: 20070307
  3. MYCOPHENOLATE MOFETIL [Concomitant]
  4. METHYLPREDNISOLONE 16MG TAB [Concomitant]

REACTIONS (18)
  - ACUTE RESPIRATORY DISTRESS SYNDROME [None]
  - BLOOD SODIUM INCREASED [None]
  - CEREBRAL HAEMORRHAGE [None]
  - DEHYDRATION [None]
  - FLUID OVERLOAD [None]
  - HAEMORRHAGE [None]
  - HEPATIC CIRRHOSIS [None]
  - MULTI-ORGAN FAILURE [None]
  - NERVOUS SYSTEM DISORDER [None]
  - ORGANISING PNEUMONIA [None]
  - PNEUMOTHORAX [None]
  - RENAL IMPAIRMENT [None]
  - RENAL TUBULAR NECROSIS [None]
  - RESPIRATORY DISORDER [None]
  - RESPIRATORY FAILURE [None]
  - SUBARACHNOID HAEMORRHAGE [None]
  - VENOOCCLUSIVE LIVER DISEASE [None]
  - VENTRICULAR DYSFUNCTION [None]
